FAERS Safety Report 11275667 (Version 1)
Quarter: 2015Q3

REPORT INFORMATION
  Report Type: Report from Study
  Country: MX (occurrence: MX)
  Receive Date: 20150716
  Receipt Date: 20150716
  Transmission Date: 20151125
  Serious: Yes (Other)
  Sender: FDA-Public Use
  Company Number: PHHY2015MX081505

PATIENT
  Sex: Female

DRUGS (2)
  1. SYDOLIL [Concomitant]
     Indication: MIGRAINE
     Route: 065
  2. ONBREZ BREEZHALER [Suspect]
     Active Substance: INDACATEROL
     Indication: BRONCHIAL HYPERREACTIVITY
     Dosage: 150 UG, QD
     Route: 065
     Dates: start: 2011

REACTIONS (12)
  - Retinal detachment [Unknown]
  - Eye disorder [Unknown]
  - Retinal injury [Unknown]
  - Hypersensitivity [Unknown]
  - Off label use [Not Recovered/Not Resolved]
  - Visual acuity reduced [Unknown]
  - Eye injury [Unknown]
  - Eye haemorrhage [Unknown]
  - Cough [Recovered/Resolved]
  - Visual impairment [Unknown]
  - Macular hole [Unknown]
  - Thrombosis [Unknown]

NARRATIVE: CASE EVENT DATE: 2011
